FAERS Safety Report 4651559-0 (Version None)
Quarter: 2005Q2

REPORT INFORMATION
  Report Type: 
  Country: None (occurrence: None)
  Receive Date: 20050502
  Receipt Date: 20050420
  Transmission Date: 20051028
  Serious: Yes (Other)
  Sender: FDA-Public Use
  Company Number: 2005062668

PATIENT
  Sex: Female

DRUGS (1)
  1. ARTHROTEC [Suspect]
     Indication: ILL-DEFINED DISORDER

REACTIONS (5)
  - ANAPHYLACTIC REACTION [None]
  - CHEST PAIN [None]
  - HYPOTENSION [None]
  - PRURITUS [None]
  - URTICARIA [None]
